FAERS Safety Report 4611249-7 (Version None)
Quarter: 2005Q1

REPORT INFORMATION
  Report Type: 
  Country: None (occurrence: None)
  Receive Date: 20050315
  Receipt Date: 20050315
  Transmission Date: 20050727
  Serious: Yes (Hospitalization, Other)
  Sender: FDA-Public Use
  Company Number: None

PATIENT
  Age: 65 Year
  Sex: Male
  Weight: 104.3273 kg

DRUGS (2)
  1. VIOXX [Suspect]
     Indication: ARTHRITIS
     Dosage: 1 PER DAY
     Dates: start: 20050203
  2. BEXTRA [Suspect]
     Indication: ARTHRITIS
     Dosage: 1 PER DAY
     Dates: start: 20040301

REACTIONS (1)
  - CHEST PAIN [None]
